FAERS Safety Report 9419104 (Version 1)
Quarter: 2013Q3

REPORT INFORMATION
  Report Type: Spontaneous
  Country: US (occurrence: None)
  Receive Date: 20130722
  Receipt Date: 20130722
  Transmission Date: 20140515
  Serious: Yes (Hospitalization)
  Sender: FDA-Public Use
  Company Number: None

PATIENT
  Age: 88 Year
  Sex: Female
  Weight: 72.7 kg

DRUGS (1)
  1. WARFARIN SODIUM [Suspect]
     Indication: DEEP VEIN THROMBOSIS
     Dosage: BY MOUTH
     Route: 048
     Dates: start: 2010, end: 20120701

REACTIONS (5)
  - Asthenia [None]
  - Dizziness [None]
  - Rectal haemorrhage [None]
  - Melaena [None]
  - Anaemia [None]
